FAERS Safety Report 20298782 (Version 2)
Quarter: 2022Q1

REPORT INFORMATION
  Report Type: Spontaneous
  Country: US (occurrence: US)
  Receive Date: 20220105
  Receipt Date: 20220204
  Transmission Date: 20220423
  Serious: Yes (Hospitalization)
  Sender: FDA-Public Use
  Company Number: US-Global Blood Therapeutics Inc-US-GBT-21-04444

PATIENT
  Sex: Female

DRUGS (1)
  1. OXBRYTA [Suspect]
     Active Substance: VOXELOTOR
     Indication: Product used for unknown indication
     Route: 048

REACTIONS (8)
  - Sickle cell anaemia with crisis [Recovered/Resolved]
  - Chest pain [Unknown]
  - Arthralgia [Unknown]
  - Epistaxis [Recovered/Resolved]
  - Coronavirus infection [Unknown]
  - Sickle cell anaemia with crisis [Recovered/Resolved]
  - Malaise [Unknown]
  - Product dose omission issue [Unknown]

NARRATIVE: CASE EVENT DATE: 20210101
